FAERS Safety Report 13927416 (Version 1)
Quarter: 2017Q3

REPORT INFORMATION
  Report Type: Spontaneous
  Country: DE (occurrence: DE)
  Receive Date: 20170831
  Receipt Date: 20170831
  Transmission Date: 20171127
  Serious: Yes (Hospitalization, Other)
  Sender: FDA-Public Use
  Company Number: DE-GLAXOSMITHKLINE-PHHY2015DE082133

PATIENT
  Age: 29 Year
  Sex: Female
  Weight: 68 kg

DRUGS (3)
  1. ATMADISC [Suspect]
     Active Substance: FLUTICASONE PROPIONATE\SALMETEROL XINAFOATE
     Indication: ASTHMA
     Dosage: UNK
     Route: 055
  2. HAVPUR [Suspect]
     Active Substance: HEPATITIS A VACCINE, INACTIVATED
     Indication: PROPHYLAXIS
     Dates: start: 20150625, end: 20150625
  3. CETIRIZIN [Concomitant]
     Active Substance: CETIRIZINE HYDROCHLORIDE
     Dosage: 0.5 UNK, PRN

REACTIONS (5)
  - Exposure during pregnancy [Unknown]
  - Anaemia [Unknown]
  - Prolonged labour [Unknown]
  - Haemorrhage [Unknown]
  - Live birth [Unknown]

NARRATIVE: CASE EVENT DATE: 20150625
